FAERS Safety Report 8862767 (Version 1)
Quarter: 2012Q4

REPORT INFORMATION
  Report Type: 
  Country: US (occurrence: US)
  Receive Date: 20121026
  Receipt Date: 20121026
  Transmission Date: 20130627
  Serious: No
  Sender: FDA-Public Use
  Company Number: US-ALLERGAN-1205983US

PATIENT
  Age: 82 Year
  Sex: Female

DRUGS (12)
  1. ALPHAGAN P [Suspect]
     Indication: INCREASED INTRAOCULAR PRESSURE
     Dosage: 2 Gtt, tid
     Route: 047
     Dates: start: 201204
  2. ALPHAGAN P [Suspect]
     Dosage: 2 Gtt, qd
     Route: 047
     Dates: start: 201204, end: 201204
  3. AZOPT [Concomitant]
     Indication: DRUG USE FOR UNKNOWN INDICATION
     Dosage: 1 Gtt, bid
     Route: 047
  4. TRAVATAN [Concomitant]
     Indication: DRUG USE FOR UNKNOWN INDICATION
     Dosage: UNK
     Route: 047
  5. SOMA [Concomitant]
     Indication: SLEEP DISORDER
     Dosage: 350 mg, qhs
  6. NEURONTIN [Concomitant]
     Indication: PAIN
  7. TRAMADOL [Concomitant]
     Indication: ANXIETY
     Dosage: 50 mg, qhs
  8. CYMBALTA [Concomitant]
     Indication: DRUG USE FOR UNKNOWN INDICATION
     Dosage: 60 mg, qd
  9. WARFARIN [Concomitant]
     Indication: CLOT BLOOD
     Dosage: 3 mg, qd
  10. CENTRUM                            /00554501/ [Concomitant]
     Indication: SUPPLEMENTATION THERAPY
     Dosage: UNK
  11. VIT D [Concomitant]
     Indication: SUPPLEMENTATION THERAPY
  12. MEGQ [Concomitant]
     Indication: SUPPLEMENTATION THERAPY
     Dosage: UNK

REACTIONS (6)
  - Inappropriate schedule of drug administration [Unknown]
  - Gaze palsy [Not Recovered/Not Resolved]
  - Hypotension [Not Recovered/Not Resolved]
  - Eye pain [Not Recovered/Not Resolved]
  - Asthenia [Not Recovered/Not Resolved]
  - Dizziness [Not Recovered/Not Resolved]
